FAERS Safety Report 25042080 (Version 2)
Quarter: 2025Q1

REPORT INFORMATION
  Report Type: Report from Study
  Country: US (occurrence: US)
  Receive Date: 20250305
  Receipt Date: 20250322
  Transmission Date: 20250408
  Serious: Yes (Hospitalization)
  Sender: ABBVIE
  Company Number: US-ABBVIE-6155325

PATIENT
  Age: 28 Year
  Sex: Male
  Weight: 73.481 kg

DRUGS (4)
  1. SKYRIZI [Suspect]
     Active Substance: RISANKIZUMAB-RZAA
     Indication: Crohn^s disease
     Dosage: STRENGTH 600MG
     Route: 042
     Dates: start: 20241217, end: 20250217
  2. OMEPRAZOLE [Concomitant]
     Active Substance: OMEPRAZOLE
     Indication: Gastric ulcer
  3. METRONIDAZOLE [Concomitant]
     Active Substance: METRONIDAZOLE
     Indication: Appendicitis
  4. PREDNISONE [Concomitant]
     Active Substance: PREDNISONE
     Indication: Inflammation

REACTIONS (3)
  - Appendicitis [Recovering/Resolving]
  - Crohn^s disease [Not Recovered/Not Resolved]
  - Gastrointestinal inflammation [Recovering/Resolving]

NARRATIVE: CASE EVENT DATE: 20250224
